FAERS Safety Report 7501670-1 (Version None)
Quarter: 2011Q2

REPORT INFORMATION
  Report Type: 
  Country: None (occurrence: None)
  Receive Date: 20110525
  Receipt Date: 20110513
  Transmission Date: 20111010
  Serious: Yes (Other)
  Sender: FDA-Public Use
  Company Number: US-BAYER-2011-041545

PATIENT
  Sex: Male

DRUGS (1)
  1. AVELOX [Suspect]
     Indication: BRONCHITIS
     Dosage: UNK
     Route: 048
     Dates: end: 20110508

REACTIONS (3)
  - ANAPHYLACTIC REACTION [None]
  - PRURITUS [None]
  - ABDOMINAL PAIN UPPER [None]
